FAERS Safety Report 8479131-5 (Version None)
Quarter: 2012Q2

REPORT INFORMATION
  Report Type: 
  Country: None (occurrence: None)
  Receive Date: 20120629
  Receipt Date: 20111220
  Transmission Date: 20120825
  Serious: Yes (Other)
  Sender: FDA-Public Use
  Company Number: AU-ROCHE-1082403

PATIENT
  Sex: Male

DRUGS (2)
  1. COPEGUS [Suspect]
     Indication: HEPATITIS C
     Dates: end: 20111220
  2. PEGASYS [Suspect]
     Indication: HEPATITIS C
     Dates: end: 20111220

REACTIONS (1)
  - DISEASE PROGRESSION [None]
